FAERS Safety Report 9714398 (Version 1)
Quarter: 2013Q4

REPORT INFORMATION
  Report Type: Spontaneous
  Country: PT (occurrence: None)
  Receive Date: 20131122
  Receipt Date: 20131122
  Transmission Date: 20140711
  Serious: Yes (Death)
  Sender: FDA-Public Use
  Company Number: PT-AIKEM-000232

PATIENT
  Age: 32 Year
  Sex: Male

DRUGS (10)
  1. QUETIAPINE [Suspect]
  2. OLANZAPINE (OLANZAPINE) [Suspect]
  3. PAROXETINE (PAROXETINE) [Suspect]
  4. FLUOXETINE (FLUOXETINE) [Suspect]
  5. RISPERIDONE (RISPERIDONE) [Suspect]
  6. NORDIAZEPAM [Suspect]
  7. BROMAZEPAM (BROMAZEPAM) [Suspect]
  8. LORAZEPAM (LORAZEPAM) [Suspect]
  9. HALOPERIDOL (HALOPERIDOL) (HALOPERIDOL) [Suspect]
  10. DIAZEPAM [Suspect]

REACTIONS (5)
  - Completed suicide [None]
  - Toxicity to various agents [None]
  - Acute pulmonary oedema [None]
  - Angiopathy [None]
  - Visceral congestion [None]
